FAERS Safety Report 8875376 (Version 3)
Quarter: 2012Q4

REPORT INFORMATION
  Report Type: 
  Country: US (occurrence: US)
  Receive Date: 20121023
  Receipt Date: 20121102
  Transmission Date: 20130627
  Serious: No
  Sender: FDA-Public Use
  Company Number: US-VERTEX PHARMACEUTICAL INC.-2012-023121

PATIENT
  Age: 55 None
  Sex: Male
  Weight: 81.6 kg

DRUGS (10)
  1. VX-950 [Suspect]
     Indication: HEPATITIS C
     Dosage: 750 mg, tid
     Route: 048
     Dates: start: 20121012
  2. PEGASYS [Suspect]
     Indication: HEPATITIS C
     Dosage: 180 ?g, weekly
     Route: 058
     Dates: start: 20121012
  3. RIBASPHERE [Concomitant]
     Indication: HEPATITIS C
     Dosage: 600 mg, bid
     Route: 048
     Dates: start: 20121012
  4. MULTIVITAMIN                       /00831701/ [Concomitant]
  5. ADVIL                              /00044201/ [Concomitant]
     Dosage: 200 mg, UNK
  6. CALCIUM + D DUETTO [Concomitant]
  7. FISH OIL [Concomitant]
  8. PANTOPRAZOLE [Concomitant]
     Dosage: 40 mg, UNK
  9. CELEXA                             /00582602/ [Concomitant]
     Dosage: 10 mg, UNK
  10. PHENERGAN                          /00033001/ [Concomitant]
     Dosage: 25 mg, UNK

REACTIONS (11)
  - Depression [Not Recovered/Not Resolved]
  - Influenza like illness [Recovered/Resolved]
  - Visual acuity reduced [Unknown]
  - Tremor [Recovered/Resolved]
  - Back pain [Unknown]
  - Chills [Recovered/Resolved]
  - Asthenia [Unknown]
  - Fatigue [Unknown]
  - Rash [Unknown]
  - Rash pruritic [Not Recovered/Not Resolved]
  - Nausea [Not Recovered/Not Resolved]
